FAERS Safety Report 12797586 (Version 1)
Quarter: 2016Q3

REPORT INFORMATION
  Report Type: Report from Study
  Country: GB (occurrence: GB)
  Receive Date: 20160930
  Receipt Date: 20160930
  Transmission Date: 20161109
  Serious: Yes (Hospitalization)
  Sender: FDA-Public Use
  Company Number: GB-ROCHE-1832616

PATIENT
  Age: 61 Year
  Sex: Female

DRUGS (5)
  1. DOXAZOCIN [Concomitant]
     Active Substance: DOXAZOSIN MESYLATE
     Route: 048
  2. PREDNISOLONE. [Concomitant]
     Active Substance: PREDNISOLONE
     Route: 048
  3. FUROSEMIDE. [Concomitant]
     Active Substance: FUROSEMIDE
     Route: 048
  4. OMEPRAZOLE. [Concomitant]
     Active Substance: OMEPRAZOLE
     Route: 048
  5. RITUXIMAB [Suspect]
     Active Substance: RITUXIMAB
     Indication: VASCULITIS
     Dosage: LAST DOSE PRIOR TO SAE 29/JUL/2016
     Route: 042
     Dates: start: 20160707

REACTIONS (2)
  - Pneumonia [Unknown]
  - Pulmonary embolism [Unknown]

NARRATIVE: CASE EVENT DATE: 20160917
